FAERS Safety Report 10206578 (Version 2)
Quarter: 2015Q1

REPORT INFORMATION
  Report Type: Spontaneous
  Country: US (occurrence: US)
  Receive Date: 20140530
  Receipt Date: 20150210
  Transmission Date: 20150720
  Serious: No
  Sender: FDA-Public Use
  Company Number: US-GLAXOSMITHKLINE-A1044204A

PATIENT

DRUGS (4)
  1. TRACLEER [Concomitant]
     Active Substance: BOSENTAN\BOSENTAN MONOHYDRATE
  2. FLOLAN [Suspect]
     Active Substance: EPOPROSTENOL SODIUM
     Indication: COR PULMONALE CHRONIC
     Dosage: 11 NG/KG/MIN, CONCENTRATION: 30,000 NG/ML, PUMP RATE: NOT REPORTED, VIAL STRENGTH: 1.5 MG.12.5 [...]
     Route: 042
     Dates: start: 20100923
  3. WARFARIN [Concomitant]
     Active Substance: WARFARIN
  4. FLOLAN [Suspect]
     Active Substance: EPOPROSTENOL SODIUM
     Dates: start: 20100923

REACTIONS (3)
  - Catheter site haemorrhage [Unknown]
  - Pain in jaw [Unknown]
  - Headache [Unknown]
